FAERS Safety Report 15328570 (Version 1)
Quarter: 2018Q4

REPORT INFORMATION
  Report Type: Spontaneous
  Country: AU (occurrence: AU)
  Receive Date: 20180829
  Receipt Date: 20180829
  Transmission Date: 20190204
  Serious: No
  Sender: FDA-Public Use
  Company Number: AU-MARKSANS PHARMA LIMITED-2054393

PATIENT
  Sex: Female

DRUGS (1)
  1. IBUPROFEN MOLECULE FROM AUSTRALIAN MARKET [Suspect]
     Active Substance: IBUPROFEN

REACTIONS (2)
  - Haematemesis [Recovered/Resolved]
  - Epigastric discomfort [Recovered/Resolved]

NARRATIVE: CASE EVENT DATE: 20180803
